FAERS Safety Report 8423403-7 (Version None)
Quarter: 2012Q2

REPORT INFORMATION
  Report Type: 
  Country: None (occurrence: None)
  Receive Date: 20120608
  Receipt Date: 20120531
  Transmission Date: 20120825
  Serious: Yes (Other)
  Sender: FDA-Public Use
  Company Number: US-JNJFOC-20120312958

PATIENT
  Sex: Female
  Weight: 54.43 kg

DRUGS (14)
  1. INFLIXIMAB, RECOMBINANT [Suspect]
     Dosage: 1 INFUSION ADMINISTERED
     Route: 042
     Dates: start: 20081020, end: 20081020
  2. INFLIXIMAB, RECOMBINANT [Suspect]
     Dosage: 7 INFUSIONS ADMINISTERED
     Route: 042
     Dates: start: 20100208, end: 20101101
  3. ACETAMINOPHEN [Concomitant]
     Indication: PREMEDICATION
     Dates: start: 20080818
  4. INFLIXIMAB, RECOMBINANT [Suspect]
     Dosage: 22 INFUSIONS ADMINISTERED
     Route: 042
     Dates: start: 20020530, end: 20041229
  5. INFLIXIMAB, RECOMBINANT [Suspect]
     Dosage: 16 INFUSIONS ADMINISTERED
     Route: 042
     Dates: start: 20050223, end: 20070627
  6. INFLIXIMAB, RECOMBINANT [Suspect]
     Dosage: 9 INFUSIONS ADMINISTERED
     Route: 042
     Dates: start: 20070627, end: 20080814
  7. BENADRYL [Concomitant]
     Indication: PREMEDICATION
     Dates: start: 20080814
  8. INFLIXIMAB, RECOMBINANT [Suspect]
     Indication: CROHN'S DISEASE
     Dosage: 13 INFUSIONS ADMINISTERED PRIOR TO TREAT REGISTRATION
     Route: 042
  9. INFLIXIMAB, RECOMBINANT [Suspect]
     Dosage: 7 INFUSIONS ADMINISTERED
     Route: 042
     Dates: start: 20110207, end: 20111128
  10. INFLIXIMAB, RECOMBINANT [Suspect]
     Dosage: 8 INFUSIONS ADMINISTERED
     Route: 042
     Dates: start: 20090209, end: 20091230
  11. MERCAPTOPURINE [Concomitant]
     Indication: CROHN'S DISEASE
     Dates: start: 19860601, end: 20080609
  12. DIPENTUM [Concomitant]
     Indication: CROHN'S DISEASE
     Dosage: ON THERAPY FOR ^MANY YEARS^
  13. PURINETHOL [Concomitant]
     Indication: CROHN'S DISEASE
     Dates: start: 20080609
  14. ASACOL [Concomitant]
     Indication: CROHN'S DISEASE
     Dosage: ON THERAPY FOR ^MANY YEARS^

REACTIONS (2)
  - ECZEMA [None]
  - INFUSION RELATED REACTION [None]
